FAERS Safety Report 4988552-4 (Version None)
Quarter: 2006Q2

REPORT INFORMATION
  Report Type: 
  Country: None (occurrence: None)
  Receive Date: 20060502
  Receipt Date: 20060419
  Transmission Date: 20061013
  Serious: Yes (Death)
  Sender: FDA-Public Use
  Company Number: HU-GLAXOSMITHKLINE-B0420589A

PATIENT
  Age: 65 Year
  Sex: Male

DRUGS (5)
  1. DUTASTERIDE [Suspect]
     Indication: BENIGN PROSTATIC HYPERPLASIA
     Dosage: .5MG PER DAY
     Route: 048
     Dates: start: 20041019
  2. TAMSULOSIN HCL [Suspect]
     Indication: BENIGN PROSTATIC HYPERPLASIA
     Dosage: .4MG PER DAY
     Route: 048
     Dates: start: 20041019
  3. ASTRIX [Concomitant]
     Dates: start: 19890101
  4. TRAMADOL HCL [Concomitant]
     Dates: start: 20040801
  5. CORDAFLEX [Concomitant]
     Dates: start: 20050310

REACTIONS (1)
  - COMPLETED SUICIDE [None]
